FAERS Safety Report 15286129 (Version 1)
Quarter: 2018Q3

REPORT INFORMATION
  Report Type: Spontaneous
  Country: US (occurrence: US)
  Receive Date: 20180802
  Receipt Date: 20180802
  Transmission Date: 20181010
  Serious: No
  Sender: FDA-Public Use
  Company Number: None

PATIENT
  Age: 24 Year
  Sex: Female
  Weight: 63.5 kg

DRUGS (4)
  1. MIRENA [Suspect]
     Active Substance: LEVONORGESTREL
     Dates: start: 20170829, end: 20180711
  2. PEPTIDES [Concomitant]
  3. COLLAGEN [Concomitant]
     Active Substance: COLLAGEN
  4. NEW CHAPTER EVERY WOMANS ONE DAILY [Concomitant]

REACTIONS (8)
  - Headache [None]
  - Fatigue [None]
  - Feeling abnormal [None]
  - Anxiety [None]
  - Muscle spasms [None]
  - Irritability [None]
  - Alopecia [None]
  - Affective disorder [None]

NARRATIVE: CASE EVENT DATE: 20170915
